FAERS Safety Report 7162840-8 (Version None)
Quarter: 2010Q4

REPORT INFORMATION
  Report Type: 
  Country: None (occurrence: None)
  Receive Date: 20101215
  Receipt Date: 20100104
  Transmission Date: 20110411
  Serious: Yes (Hospitalization, Other)
  Sender: FDA-Public Use
  Company Number: CH-PFIZER INC-2010000714

PATIENT
  Age: 80 Year
  Sex: Female

DRUGS (1)
  1. LYRICA [Suspect]
     Indication: PAIN
     Dosage: 1X150 MG, 1X75 MG / DAY
     Route: 048

REACTIONS (4)
  - ANXIETY [None]
  - NERVOUSNESS [None]
  - RESTLESSNESS [None]
  - WITHDRAWAL SYNDROME [None]
